FAERS Safety Report 14892558 (Version 9)
Quarter: 2019Q1

REPORT INFORMATION
  Report Type: Spontaneous
  Country: US (occurrence: US)
  Receive Date: 20180514
  Receipt Date: 20190322
  Transmission Date: 20190417
  Serious: Yes (Other)
  Sender: FDA-Public Use
  Company Number: US-GLAXOSMITHKLINE-US2018GSK085014

PATIENT
  Sex: Female

DRUGS (4)
  1. PREVACID [Suspect]
     Active Substance: LANSOPRAZOLE
     Dosage: 45 MG, QD
     Route: 048
  2. PREVACID [Suspect]
     Active Substance: LANSOPRAZOLE
     Dosage: 15 MG, QD
     Route: 048
  3. PREVACID [Suspect]
     Active Substance: LANSOPRAZOLE
     Indication: GASTROOESOPHAGEAL REFLUX DISEASE
     Dosage: 15 MG, TID
     Route: 065
  4. PREVACID [Suspect]
     Active Substance: LANSOPRAZOLE
     Indication: GASTROOESOPHAGEAL REFLUX DISEASE
     Dosage: 30 MG, QD
     Route: 065

REACTIONS (17)
  - Chronic kidney disease [Unknown]
  - Urinary incontinence [Unknown]
  - Urge incontinence [Unknown]
  - Renal impairment [Unknown]
  - Haematuria [Unknown]
  - Pollakiuria [Unknown]
  - Nephropathy [Unknown]
  - Renal injury [Unknown]
  - Glomerulonephritis [Unknown]
  - Tubulointerstitial nephritis [Unknown]
  - Dysuria [Unknown]
  - Nocturia [Unknown]
  - Urethritis [Unknown]
  - Hypertensive nephropathy [Unknown]
  - IgA nephropathy [Unknown]
  - Renal failure [Unknown]
  - Cystitis [Unknown]
